FAERS Safety Report 18205498 (Version 1)
Quarter: 2020Q3

REPORT INFORMATION
  Report Type: Spontaneous
  Country: IN (occurrence: IN)
  Receive Date: 20200828
  Receipt Date: 20200828
  Transmission Date: 20201103
  Serious: Yes (Life-Threatening, Hospitalization, Other)
  Sender: FDA-Public Use
  Company Number: IN-LUPIN PHARMACEUTICALS INC.-2020-05179

PATIENT
  Age: 62 Year
  Sex: Male

DRUGS (4)
  1. MORPHINE [Suspect]
     Active Substance: MORPHINE
     Indication: RESPIRATORY DISTRESS
     Dosage: UNK
     Route: 065
  2. SIROLIMUS. [Concomitant]
     Active Substance: SIROLIMUS
     Indication: CORONARY ARTERY DISEASE
     Dosage: STENT PLACED
     Route: 065
  3. FUROSEMIDE. [Suspect]
     Active Substance: FUROSEMIDE
     Indication: RESPIRATORY DISTRESS
     Dosage: UNK
     Route: 065
  4. ADENOSINE. [Suspect]
     Active Substance: ADENOSINE
     Indication: ACUTE MYOCARDIAL INFARCTION
     Dosage: 300 MICROGRAM, TOTAL
     Route: 022

REACTIONS (3)
  - Respiratory failure [Recovering/Resolving]
  - Hypoxia [Recovering/Resolving]
  - Drug ineffective [Unknown]
